FAERS Safety Report 6975009-4 (Version None)
Quarter: 2010Q3

REPORT INFORMATION
  Report Type: 
  Country: None (occurrence: None)
  Receive Date: 20100910
  Receipt Date: 20090115
  Transmission Date: 20110219
  Serious: No
  Sender: FDA-Public Use
  Company Number: US-WYE-H07713609

PATIENT

DRUGS (1)
  1. PRISTIQ [Suspect]
     Route: 048

REACTIONS (2)
  - FEELING JITTERY [None]
  - PSYCHOMOTOR HYPERACTIVITY [None]
